FAERS Safety Report 9692731 (Version 1)
Quarter: 2013Q4

REPORT INFORMATION
  Report Type: Spontaneous
  Country: US (occurrence: None)
  Receive Date: 20131115
  Receipt Date: 20131115
  Transmission Date: 20140711
  Serious: Yes (Other)
  Sender: FDA-Public Use
  Company Number: None

PATIENT
  Age: 43 Year
  Sex: Female
  Weight: 90.27 kg

DRUGS (1)
  1. CITALOPRAM 20 MG [Suspect]
     Indication: ANXIETY
     Dosage: 20 MG ONCE DAILY TAKEN BY MOUTH
     Route: 048
     Dates: start: 20130819, end: 20131020

REACTIONS (1)
  - Alopecia [None]
